FAERS Safety Report 21615939 (Version 2)
Quarter: 2022Q4

REPORT INFORMATION
  Report Type: Report from Study
  Country: US (occurrence: US)
  Receive Date: 20221118
  Receipt Date: 20221118
  Transmission Date: 20230112
  Serious: No
  Sender: FDA-Public Use
  Company Number: US-ABBVIE-4188950

PATIENT
  Age: 61 Year
  Sex: Female

DRUGS (1)
  1. HUMIRA [Suspect]
     Active Substance: ADALIMUMAB
     Indication: Guttate psoriasis
     Route: 058

REACTIONS (8)
  - Injection site pruritus [Recovering/Resolving]
  - Illness [Unknown]
  - Injection site swelling [Recovering/Resolving]
  - Nasal congestion [Recovered/Resolved]
  - Injection site haemorrhage [Recovering/Resolving]
  - Ear pruritus [Recovered/Resolved]
  - Throat irritation [Recovered/Resolved]
  - Off label use [Unknown]

NARRATIVE: CASE EVENT DATE: 20220801
